FAERS Safety Report 11448885 (Version 4)
Quarter: 2019Q1

REPORT INFORMATION
  Report Type: Spontaneous
  Country: US (occurrence: US)
  Receive Date: 20150902
  Receipt Date: 20190222
  Transmission Date: 20190417
  Serious: Yes (Hospitalization)
  Sender: FDA-Public Use
  Company Number: US-OTSUKA-2015_008270

PATIENT
  Age: 16 Year
  Sex: Male

DRUGS (6)
  1. ABILIFY [Suspect]
     Active Substance: ARIPIPRAZOLE
     Indication: AFFECTIVE DISORDER
     Dosage: UNK
     Route: 065
  2. STRATTERA [Suspect]
     Active Substance: ATOMOXETINE HYDROCHLORIDE
     Indication: ATTENTION DEFICIT/HYPERACTIVITY DISORDER
     Dosage: UNK
     Route: 065
  3. LITHIUM. [Suspect]
     Active Substance: LITHIUM
     Indication: BIPOLAR DISORDER
     Dosage: 450 MG, BID
     Route: 065
     Dates: start: 201503
  4. LITHIUM. [Suspect]
     Active Substance: LITHIUM
     Dosage: 300 MG, QD
     Route: 065
     Dates: start: 20150826
  5. ABILIFY MAINTENA [Suspect]
     Active Substance: ARIPIPRAZOLE
     Indication: BIPOLAR DISORDER
     Dosage: 400 MG, QM
     Route: 030
     Dates: start: 20150805
  6. LITHIUM. [Suspect]
     Active Substance: LITHIUM
     Dosage: 300 MG, BID
     Route: 065
     Dates: start: 20150819

REACTIONS (10)
  - Treatment noncompliance [Unknown]
  - Feeling jittery [Not Recovered/Not Resolved]
  - Drug level below therapeutic [Unknown]
  - Feeling abnormal [Unknown]
  - Restlessness [Not Recovered/Not Resolved]
  - Bipolar disorder [Unknown]
  - Weight increased [Unknown]
  - Anxiety [Not Recovered/Not Resolved]
  - Product use in unapproved indication [Unknown]
  - Tremor [Not Recovered/Not Resolved]

NARRATIVE: CASE EVENT DATE: 201508
